FAERS Safety Report 5191772-X (Version None)
Quarter: 2006Q4

REPORT INFORMATION
  Report Type: 
  Country: None (occurrence: None)
  Receive Date: 20061219
  Receipt Date: 20061213
  Transmission Date: 20070319
  Serious: Yes (Life-Threatening)
  Sender: FDA-Public Use
  Company Number: CN-2006-039102

PATIENT
  Age: 65 Year
  Sex: Female

DRUGS (1)
  1. ULTRAVIST 300 [Suspect]
     Indication: ANGIOGRAM
     Dosage: 100 ML, 1 DOSE, IV BOLUS
     Route: 040
     Dates: start: 20061207, end: 20061207

REACTIONS (7)
  - CHEST DISCOMFORT [None]
  - CIRCULATORY COLLAPSE [None]
  - FLUSHING [None]
  - HYPOAESTHESIA ORAL [None]
  - HYPOXIA [None]
  - LIP SWELLING [None]
  - SWELLING FACE [None]
